FAERS Safety Report 4344849-2 (Version None)
Quarter: 2004Q2

REPORT INFORMATION
  Report Type: 
  Country: None (occurrence: None)
  Receive Date: 20040423
  Receipt Date: 20040413
  Transmission Date: 20050107
  Serious: Yes (Other)
  Sender: FDA-Public Use
  Company Number: GB-BRISTOL-MYERS SQUIBB COMPANY-12557906

PATIENT
  Age: 54 Year
  Sex: Male

DRUGS (5)
  1. STAVUDINE [Suspect]
     Indication: RETROVIRAL INFECTION
     Dates: start: 19980101
  2. VISTIDE [Suspect]
     Indication: CYTOMEGALOVIRUS INFECTION
  3. LAMIVUDINE [Suspect]
     Indication: RETROVIRAL INFECTION
     Dates: start: 19980101
  4. NELFINAVIR [Suspect]
     Indication: RETROVIRAL INFECTION
     Dates: start: 19980101
  5. GANCICLOVIR [Concomitant]

REACTIONS (5)
  - CATARACT SUBCAPSULAR [None]
  - HYPOTONY OF EYE [None]
  - IRIDOCYCLITIS [None]
  - MACULAR OEDEMA [None]
  - VITRITIS [None]
